FAERS Safety Report 25982472 (Version 1)
Quarter: 2025Q4

REPORT INFORMATION
  Report Type: Spontaneous
  Country: US (occurrence: US)
  Receive Date: 20251031
  Receipt Date: 20251031
  Transmission Date: 20260118
  Serious: No
  Sender: GSK
  Company Number: US-GSK-US2025126013

PATIENT

DRUGS (1)
  1. JEMPERLI [Suspect]
     Active Substance: DOSTARLIMAB-GXLY
     Indication: Ovarian cancer recurrent
     Dosage: UNK

REACTIONS (1)
  - Arthralgia [Recovering/Resolving]
